FAERS Safety Report 9362065 (Version 1)
Quarter: 2013Q2

REPORT INFORMATION
  Report Type: Report from Study
  Country: ES (occurrence: ES)
  Receive Date: 20130621
  Receipt Date: 20130621
  Transmission Date: 20140414
  Serious: Yes (Death, Life-Threatening, Disabling, Other)
  Sender: FDA-Public Use
  Company Number: ES-ASTRAZENECA-2013SE47673

PATIENT
  Age: 26668 Day
  Sex: Male

DRUGS (16)
  1. AZD6140 [Suspect]
     Indication: ACUTE MYOCARDIAL INFARCTION
     Dosage: FIRST BLINDED DOSE IN PRE-HOSPITALIZATION
     Route: 048
     Dates: start: 20130521
  2. AZD6140 [Suspect]
     Indication: ACUTE MYOCARDIAL INFARCTION
     Dosage: SECOND BLINDED DOSE DURING IN-HOSPITALIZATION
     Route: 048
     Dates: start: 20130521
  3. ASA [Concomitant]
     Route: 048
     Dates: start: 20130521, end: 20130521
  4. ASA [Concomitant]
     Route: 048
     Dates: start: 20130522
  5. SINTRON [Concomitant]
     Route: 048
     Dates: start: 20130531, end: 20130531
  6. SINTRON [Concomitant]
     Route: 048
     Dates: start: 20130601, end: 20130601
  7. SINTRON [Concomitant]
     Route: 048
     Dates: start: 20130602, end: 20130602
  8. SINTRON [Concomitant]
     Route: 048
     Dates: start: 20130603, end: 20130603
  9. SINTRON [Concomitant]
     Route: 048
     Dates: start: 20130604, end: 20130604
  10. SINTRON [Concomitant]
     Route: 048
     Dates: start: 20130605, end: 20130605
  11. SINTRON [Concomitant]
     Route: 048
     Dates: start: 20130606
  12. PANTOPRAZOLE [Concomitant]
     Route: 048
     Dates: start: 20130522
  13. ENALAPRIL [Concomitant]
     Route: 048
     Dates: start: 20130522
  14. NEBIVOLOL [Concomitant]
     Route: 048
     Dates: start: 20130605
  15. METFORMINE [Concomitant]
     Route: 048
     Dates: start: 20130601
  16. METRONODAZOLE [Concomitant]
     Route: 042
     Dates: start: 20130603

REACTIONS (1)
  - Cardiac death [Fatal]
